FAERS Safety Report 5792992-3 (Version None)
Quarter: 2008Q2

REPORT INFORMATION
  Report Type: 
  Country: None (occurrence: None)
  Receive Date: 20080627
  Receipt Date: 20080617
  Transmission Date: 20081010
  Serious: Yes (Other)
  Sender: FDA-Public Use
  Company Number: US-ROCHE-570566

PATIENT
  Sex: Male
  Weight: 117 kg

DRUGS (10)
  1. PEGASYS [Suspect]
     Indication: HEPATITIS C
     Route: 065
     Dates: start: 20070801, end: 20080131
  2. COPEGUS [Suspect]
     Indication: HEPATITIS C
     Dosage: 2 DOSEFORM IN THE MORNING AND 2 IN THE EVENING.
     Route: 065
     Dates: start: 20070801, end: 20080131
  3. VALIUM [Suspect]
     Indication: DRUG USE FOR UNKNOWN INDICATION
     Route: 065
  4. LIBRIUM [Concomitant]
     Dosage: SECOND INDICATION: ANXIETY
  5. FUROSEMIDE [Concomitant]
  6. LAMICTAL [Concomitant]
  7. METOPROLOL [Concomitant]
  8. ASPIRIN [Concomitant]
     Dosage: DRUG REPORTED AS BABY ASPIRIN.
  9. AMLACTIN [Concomitant]
     Indication: ECZEMA
  10. FLUOCINONIDE [Concomitant]
     Indication: ECZEMA

REACTIONS (3)
  - CONVULSION [None]
  - HYPOTHYROIDISM [None]
  - INVESTIGATION ABNORMAL [None]
